FAERS Safety Report 7688943-7 (Version None)
Quarter: 2011Q3

REPORT INFORMATION
  Report Type: 
  Country: None (occurrence: None)
  Receive Date: 20110817
  Receipt Date: 20110810
  Transmission Date: 20111222
  Serious: Yes (Hospitalization)
  Sender: FDA-Public Use
  Company Number: PHHY2011IL72033

PATIENT
  Age: 58 Year
  Sex: Female

DRUGS (2)
  1. AFINITOR [Suspect]
     Dosage: 10 MG, DAILY
     Route: 048
  2. AFINITOR [Suspect]
     Indication: RENAL CANCER METASTATIC
     Dosage: 10 MG, DAILY
     Route: 048
     Dates: start: 20110701

REACTIONS (1)
  - INTESTINAL OBSTRUCTION [None]
